FAERS Safety Report 20165004 (Version 3)
Quarter: 2022Q4

REPORT INFORMATION
  Report Type: Spontaneous
  Country: DE (occurrence: DE)
  Receive Date: 20211209
  Receipt Date: 20221219
  Transmission Date: 20230113
  Serious: Yes (Life-Threatening, Other)
  Sender: FDA-Public Use
  Company Number: DE-MYLANLABS-2021M1089078

PATIENT
  Age: 52 Year
  Sex: Male

DRUGS (10)
  1. FONDAPARINUX [Suspect]
     Active Substance: FONDAPARINUX
     Indication: Thrombosis prophylaxis
     Dosage: UNK
     Route: 065
     Dates: start: 1998
  2. FONDAPARINUX [Suspect]
     Active Substance: FONDAPARINUX
     Indication: Skin test
     Dosage: UNK
     Route: 023
  3. NADROPARIN [Suspect]
     Active Substance: NADROPARIN
     Indication: Skin test
     Dosage: UNK
     Route: 023
  4. CERTOPARIN SODIUM [Suspect]
     Active Substance: CERTOPARIN SODIUM
     Indication: Skin test
     Dosage: UNK
     Route: 023
  5. ENOXAPARIN SODIUM [Suspect]
     Active Substance: ENOXAPARIN SODIUM
     Indication: Skin test
     Dosage: UNK
     Route: 023
  6. DALTEPARIN SODIUM [Suspect]
     Active Substance: DALTEPARIN SODIUM
     Indication: Skin test
     Dosage: UNK
     Route: 023
  7. HEPARIN SODIUM [Suspect]
     Active Substance: HEPARIN SODIUM
     Indication: Skin test
     Dosage: UNK
     Route: 023
  8. HEPARIN CALCIUM [Suspect]
     Active Substance: HEPARIN CALCIUM
     Indication: Skin test
     Dosage: UNK
     Route: 023
  9. DANAPAROID SODIUM [Concomitant]
     Active Substance: DANAPAROID SODIUM
     Indication: Skin test
     Dosage: UNK
     Route: 023
  10. ORGARAN [Concomitant]
     Active Substance: DANAPAROID SODIUM
     Indication: Thrombosis prophylaxis
     Dosage: UNK
     Route: 065

REACTIONS (4)
  - Anaphylactic reaction [Recovering/Resolving]
  - Type I hypersensitivity [Recovering/Resolving]
  - Cross sensitivity reaction [Recovering/Resolving]
  - Urticaria [Recovering/Resolving]
